FAERS Safety Report 5189697-9 (Version None)
Quarter: 2006Q4

REPORT INFORMATION
  Report Type: 
  Country: None (occurrence: None)
  Receive Date: 20061215
  Receipt Date: 20061204
  Transmission Date: 20070319
  Serious: Yes (Other)
  Sender: FDA-Public Use
  Company Number: 2005103201

PATIENT
  Sex: Male

DRUGS (14)
  1. NEURONTIN [Suspect]
     Indication: BACK PAIN
     Dosage: SEE IMAGE
     Dates: start: 20010501, end: 20010801
  2. NEURONTIN [Suspect]
     Indication: BIPOLAR DISORDER
     Dosage: SEE IMAGE
     Dates: start: 20010501, end: 20010801
  3. NEURONTIN [Suspect]
     Indication: BACK PAIN
     Dosage: SEE IMAGE
     Dates: start: 20010801, end: 20021101
  4. NEURONTIN [Suspect]
     Indication: BIPOLAR DISORDER
     Dosage: SEE IMAGE
     Dates: start: 20010801, end: 20021101
  5. GEODON [Concomitant]
  6. OXYCODONE AND ACETAMINOPHEN [Concomitant]
  7. CELEXA [Concomitant]
  8. ALBUTEROL [Concomitant]
  9. COMBIVENT [Concomitant]
  10. FLOVENT [Concomitant]
  11. ASPIRIN [Concomitant]
  12. ARTHROTEC [Concomitant]
  13. AMBIEN [Concomitant]
  14. SOMA [Concomitant]

REACTIONS (3)
  - DRUG INEFFECTIVE [None]
  - GUN SHOT WOUND [None]
  - SUICIDE ATTEMPT [None]
